FAERS Safety Report 21876160 (Version 1)
Quarter: 2023Q1

REPORT INFORMATION
  Report Type: Spontaneous
  Country: US (occurrence: US)
  Receive Date: 20230118
  Receipt Date: 20230118
  Transmission Date: 20230418
  Serious: Yes (Hospitalization)
  Sender: FDA-Public Use
  Company Number: US-AMGEN-USASP2023008276

PATIENT
  Sex: Female

DRUGS (1)
  1. LUMAKRAS [Suspect]
     Active Substance: SOTORASIB
     Indication: Non-small cell lung cancer
     Dosage: 960 MILLIGRAM, QD (120 MG 8 PILLS A DAY)
     Route: 048
     Dates: start: 20221117, end: 20230107

REACTIONS (3)
  - Blood potassium decreased [Not Recovered/Not Resolved]
  - Gait disturbance [Unknown]
  - Blood magnesium decreased [Not Recovered/Not Resolved]
